FAERS Safety Report 4817541-5 (Version None)
Quarter: 2005Q4

REPORT INFORMATION
  Report Type: 
  Country: None (occurrence: None)
  Receive Date: 20051031
  Receipt Date: 20051019
  Transmission Date: 20060501
  Serious: Yes (Hospitalization, Other)
  Sender: FDA-Public Use
  Company Number: 2005144053

PATIENT

DRUGS (4)
  1. ZYVOX [Suspect]
     Dosage: ORAL
     Route: 048
  2. COVERSYL (PERINOPRIL) [Concomitant]
  3. MESALAMINE [Concomitant]
  4. OMEPRAZOLE [Concomitant]

REACTIONS (2)
  - DRUG ADMINISTRATION ERROR [None]
  - EPILEPSY [None]
